FAERS Safety Report 20618607 (Version 1)
Quarter: 2022Q1

REPORT INFORMATION
  Report Type: Report from Study
  Country: US (occurrence: US)
  Receive Date: 20220322
  Receipt Date: 20220322
  Transmission Date: 20220423
  Serious: Yes (Hospitalization, Other)
  Sender: FDA-Public Use
  Company Number: US-ABBVIE-22K-163-4323065-00

PATIENT
  Sex: Male

DRUGS (1)
  1. VENCLEXTA [Suspect]
     Active Substance: VENETOCLAX
     Indication: Acute myeloid leukaemia
     Dosage: ONE 50 MG TABLET WITH TWO 10 MG TABLET WITH FOOD, FULL GLASS OF WATER FOR 14 DAY
     Route: 048

REACTIONS (2)
  - Terminal state [Unknown]
  - Hospitalisation [Unknown]
